FAERS Safety Report 6999682-X (Version None)
Quarter: 2010Q3

REPORT INFORMATION
  Report Type: 
  Country: None (occurrence: None)
  Receive Date: 20100920
  Receipt Date: 20100129
  Transmission Date: 20110219
  Serious: No
  Sender: FDA-Public Use
  Company Number: US-ASTRAZENECA-2008UW24464

PATIENT
  Age: 31 Year
  Sex: Male
  Weight: 181.4 kg

DRUGS (17)
  1. SEROQUEL [Suspect]
     Indication: SCHIZOAFFECTIVE DISORDER
     Route: 048
     Dates: start: 20040301, end: 20060301
  2. SEROQUEL [Suspect]
     Indication: BIPOLAR I DISORDER
     Route: 048
     Dates: start: 20040301, end: 20060301
  3. SEROQUEL [Suspect]
     Indication: BIPOLAR DISORDER
     Route: 048
     Dates: start: 20040301, end: 20060301
  4. SEROQUEL [Suspect]
     Route: 048
     Dates: end: 20070301
  5. SEROQUEL [Suspect]
     Route: 048
     Dates: end: 20070301
  6. SEROQUEL [Suspect]
     Route: 048
     Dates: end: 20070301
  7. LITHIUM CARBONATE [Concomitant]
     Indication: BIPOLAR DISORDER
     Dates: start: 19940101, end: 20000101
  8. LITHIUM CARBONATE [Concomitant]
     Indication: SCHIZOPHRENIA
     Dates: start: 19940101, end: 20000101
  9. LITHIUM CARBONATE [Concomitant]
     Dates: start: 20040101, end: 20060101
  10. LITHIUM CARBONATE [Concomitant]
     Dates: start: 20040101, end: 20060101
  11. CITALOPRAM HYDROBROMIDE [Concomitant]
     Indication: BIPOLAR DISORDER
     Dates: start: 20060101
  12. LEXAPRO [Concomitant]
     Indication: DEPRESSION
     Dates: start: 20060101
  13. ABILIFY [Concomitant]
  14. HALDOL [Concomitant]
  15. STELAZINE [Concomitant]
  16. ZYPREXA [Concomitant]
  17. SYMBYAX [Concomitant]

REACTIONS (7)
  - BLOOD CHOLESTEROL INCREASED [None]
  - CHRONIC OBSTRUCTIVE PULMONARY DISEASE [None]
  - DIABETES MELLITUS [None]
  - GLUCOSE TOLERANCE IMPAIRED [None]
  - HYPERLIPIDAEMIA [None]
  - MALAISE [None]
  - WEIGHT INCREASED [None]
